FAERS Safety Report 20156247 (Version 1)
Quarter: 2021Q4

REPORT INFORMATION
  Report Type: Other
  Country: CA (occurrence: None)
  Receive Date: 20211207
  Receipt Date: 20211207
  Transmission Date: 20220303
  Serious: Yes (Other)
  Sender: FDA-Public Use
  Company Number: CA-ROCHE-1552875

PATIENT
  Sex: Female
  Weight: 53.1 kg

DRUGS (10)
  1. ACTEMRA [Suspect]
     Active Substance: TOCILIZUMAB
     Indication: Systemic scleroderma
     Dosage: CLINICAL TRIAL FOR TWO YEARS BEFORE RPAP
     Route: 042
     Dates: start: 20140724, end: 20151104
  2. ACTEMRA [Suspect]
     Active Substance: TOCILIZUMAB
     Indication: Rheumatoid arthritis
     Route: 042
     Dates: start: 20151202, end: 20151202
  3. ACTEMRA [Suspect]
     Active Substance: TOCILIZUMAB
     Dosage: ONGOING; DOSAGE REMAINED AT 212 MG POST 07-DEC-2016 (AS NOTED ON PRESCRIPTIONS)
     Route: 042
     Dates: start: 20160107
  4. LIPIDIL [Concomitant]
     Active Substance: FENOFIBRATE
  5. EZETIMIBE [Concomitant]
     Active Substance: EZETIMIBE
  6. SYNTHROID [Concomitant]
     Active Substance: LEVOTHYROXINE SODIUM
  7. ALENDRONATE [Concomitant]
     Active Substance: ALENDRONATE SODIUM
  8. DEXILANT [Concomitant]
     Active Substance: DEXLANSOPRAZOLE
  9. NIFEDIPINE [Concomitant]
     Active Substance: NIFEDIPINE
  10. ASPIRIN [Concomitant]
     Active Substance: ASPIRIN

REACTIONS (5)
  - Cataract [Unknown]
  - Pneumonia [Unknown]
  - Pharyngitis [Unknown]
  - Localised infection [Unknown]
  - Off label use [Unknown]

NARRATIVE: CASE EVENT DATE: 20150101
